FAERS Safety Report 6127180-4 (Version None)
Quarter: 2009Q1

REPORT INFORMATION
  Report Type: 
  Country: None (occurrence: None)
  Receive Date: 20090320
  Receipt Date: 20090306
  Transmission Date: 20090719
  Serious: Yes (Death)
  Sender: FDA-Public Use
  Company Number: JP-GENENTECH-278718

PATIENT
  Sex: Male

DRUGS (4)
  1. AVASTIN [Suspect]
     Indication: COLON CANCER METASTATIC
     Dosage: 5 MG/KG, Q2W
     Route: 042
     Dates: start: 20080826, end: 20090203
  2. ELPLAT [Suspect]
     Indication: COLON CANCER METASTATIC
     Dosage: 140 MG, Q2W
     Route: 042
     Dates: start: 20080716, end: 20090202
  3. FLUOROURACIL [Suspect]
     Indication: COLON CANCER METASTATIC
     Dosage: 4650 MG, Q2W
     Route: 042
     Dates: start: 20080716, end: 20090202
  4. CALCIUM LEVOFOLINATE [Suspect]
     Indication: COLON CANCER METASTATIC
     Dosage: 350 MG, Q2W
     Route: 042
     Dates: start: 20080716, end: 20090202

REACTIONS (4)
  - CEREBRAL INFARCTION [None]
  - EPISTAXIS [None]
  - INTERSTITIAL LUNG DISEASE [None]
  - PROTEINURIA [None]
